FAERS Safety Report 24005760 (Version 1)
Quarter: 2024Q2

REPORT INFORMATION
  Report Type: Spontaneous
  Country: US (occurrence: None)
  Receive Date: 20240622
  Receipt Date: 20240622
  Transmission Date: 20240716
  Serious: Yes (Life-Threatening)
  Sender: FDA-Public Use
  Company Number: None

PATIENT
  Age: 24 Year
  Sex: Male
  Weight: 75.3 kg

DRUGS (8)
  1. DEFINITY [Suspect]
     Active Substance: PERFLUTREN
     Indication: Contrast media deposition
     Dates: start: 20240619, end: 20240619
  2. COREG [Concomitant]
     Active Substance: CARVEDILOL
  3. SOLU-MEDROL [Concomitant]
     Active Substance: METHYLPREDNISOLONE SODIUM SUCCINATE
  4. HEPARIN [Concomitant]
     Active Substance: HEPARIN SODIUM
  5. LISINOPRIL [Concomitant]
     Active Substance: LISINOPRIL
  6. LINEZOLID [Concomitant]
     Active Substance: LINEZOLID
  7. BACTRIM [Concomitant]
     Active Substance: SULFAMETHOXAZOLE\TRIMETHOPRIM
  8. ZOSYN [Concomitant]
     Active Substance: PIPERACILLIN SODIUM\TAZOBACTAM SODIUM

REACTIONS (4)
  - Pulseless electrical activity [None]
  - Sinus tachycardia [None]
  - Ejection fraction decreased [None]
  - Heart rate decreased [None]

NARRATIVE: CASE EVENT DATE: 20240619
